FAERS Safety Report 17227919 (Version 1)
Quarter: 2020Q1

REPORT INFORMATION
  Report Type: Spontaneous
  Country: US (occurrence: US)
  Receive Date: 20200103
  Receipt Date: 20200103
  Transmission Date: 20200409
  Serious: No
  Sender: FDA-Public Use
  Company Number: US-LUPIN PHARMACEUTICALS INC.-2019-06681

PATIENT
  Sex: Female

DRUGS (1)
  1. METHYLPHENIDATE HYDROCHLORIDE TABLET [Suspect]
     Active Substance: METHYLPHENIDATE HYDROCHLORIDE
     Indication: ATTENTION DEFICIT/HYPERACTIVITY DISORDER
     Dosage: 8.6 MILLIGRAM, SINGLE
     Route: 048

REACTIONS (1)
  - Tachycardia [Recovered/Resolved]
